FAERS Safety Report 5631951-8 (Version None)
Quarter: 2008Q1

REPORT INFORMATION
  Report Type: 
  Country: None (occurrence: None)
  Receive Date: 20080220
  Receipt Date: 20080212
  Transmission Date: 20080703
  Serious: Yes (Hospitalization)
  Sender: FDA-Public Use
  Company Number: MX-ELI_LILLY_AND_COMPANY-MX200801005332

PATIENT
  Age: 54 Year
  Sex: Female
  Weight: 65 kg

DRUGS (7)
  1. FORTEO [Suspect]
     Dosage: UNK UNK, DAILY (1/D)
     Route: 058
     Dates: start: 20080123
  2. METFORMIN HCL [Concomitant]
     Indication: DIABETES MELLITUS
     Dosage: 500 MG, EACH MORNING
     Route: 065
  3. GLYBURIDE [Concomitant]
     Indication: DIABETES MELLITUS
     Dosage: UNK UNK, EACH MORNING
     Route: 048
  4. ENALAPRIL MALEATE [Concomitant]
     Indication: HYPERTENSION
     Dosage: 10 MG, DAILY (1/D)
     Route: 048
  5. TRAMADOL HCL [Concomitant]
     Indication: PAIN
     Dosage: 25 MG, UNKNOWN
     Route: 048
  6. TRAMADOL HCL [Concomitant]
     Dosage: 10 MG, UNKNOWN
     Route: 048
  7. GABAPENTIN [Concomitant]
     Indication: PAIN
     Dosage: 300 MG, 2/D
     Route: 048

REACTIONS (8)
  - CHILLS [None]
  - CONSTIPATION [None]
  - DECREASED APPETITE [None]
  - FEELING COLD [None]
  - INFECTION [None]
  - NAUSEA [None]
  - TREMOR [None]
  - VOMITING [None]
